FAERS Safety Report 17810831 (Version 1)
Quarter: 2020Q2

REPORT INFORMATION
  Report Type: Spontaneous
  Country: US (occurrence: US)
  Receive Date: 20200521
  Receipt Date: 20200521
  Transmission Date: 20200714
  Serious: Yes (Other)
  Sender: FDA-Public Use
  Company Number: US-ACCORD-129562

PATIENT
  Age: 21 Year
  Sex: Male
  Weight: 61.69 kg

DRUGS (6)
  1. CLONIDINE. [Concomitant]
     Active Substance: CLONIDINE
     Dosage: 5 QD
  2. QUETIAPINE ACCORD [Suspect]
     Active Substance: QUETIAPINE
     Indication: SLEEP DISORDER
     Dosage: STRENGTH: 50 MG, QD QHS
     Dates: start: 201805
  3. RISPERIDONE. [Concomitant]
     Active Substance: RISPERIDONE
     Dosage: BID
  4. CANNABIS SATIVA [Concomitant]
     Active Substance: CANNABIS SATIVA FLOWERING TOP
     Dosage: QD
  5. DIAZEPAM. [Concomitant]
     Active Substance: DIAZEPAM
     Dosage: BID
  6. MELATONIN [Concomitant]
     Active Substance: MELATONIN
     Dosage: QD

REACTIONS (5)
  - Off label use [Unknown]
  - Drug intolerance [Unknown]
  - Somnambulism [Recovered/Resolved]
  - Aggression [Recovered/Resolved]
  - Seizure [Recovered/Resolved]

NARRATIVE: CASE EVENT DATE: 201805
